FAERS Safety Report 5472445-2 (Version None)
Quarter: 2007Q3

REPORT INFORMATION
  Report Type: 
  Country: None (occurrence: None)
  Receive Date: 20070926
  Receipt Date: 20070911
  Transmission Date: 20080115
  Serious: Yes (Life-Threatening)
  Sender: FDA-Public Use
  Company Number: 2007RR-09784

PATIENT
  Age: 88 Year
  Sex: Female

DRUGS (25)
  1. FENOFIBRATE [Suspect]
     Dosage: 267 MG, ORAL
     Route: 048
     Dates: end: 20070629
  2. AUGMENTIN '200' [Suspect]
     Indication: DIVERTICULITIS
     Dosage: SEE IMAGE
     Dates: start: 20070613, end: 20070617
  3. AUGMENTIN '200' [Suspect]
     Indication: INFECTION
     Dosage: SEE IMAGE
     Dates: start: 20070613, end: 20070617
  4. CO-AMILOFRUSE (AMILORIDE HYDROCHLORIDE; FUROSEMIDE) [Concomitant]
  5. DIGOXIN [Concomitant]
  6. LEVOTHYROXINE SODIUM [Concomitant]
  7. METRONIDAZOLE [Concomitant]
  8. PAROXETINE HCL [Concomitant]
  9. TEMAZEPAM [Concomitant]
  10. WARFARIN SODIUM [Concomitant]
  11. CEFUROXIME [Concomitant]
  12. PARACETAMOL (ACETAMINOPHEN/PARACETAMOL) [Concomitant]
  13. OMEPRAZOLE [Concomitant]
  14. FLOXACILLIN SODIUM [Concomitant]
  15. TEICOPLANIN (TEICOPLANIN) [Concomitant]
  16. TAZOSIN (TAZOSIN) [Concomitant]
  17. FOLIC ACID [Concomitant]
  18. MULTIVITAMIN [Concomitant]
  19. DAPTOMYCIN (DAPTOMYCIN) [Concomitant]
  20. ITRACONAZOLE [Concomitant]
  21. LENOGRASTIM (LENOGRASTIM) [Concomitant]
  22. MEROPENEM (MEROPENEM) [Concomitant]
  23. AMBISOME [Concomitant]
  24. FUROSEMIDE [Concomitant]
  25. VORICONAZOLE (VORICONAZOLE) [Concomitant]

REACTIONS (2)
  - AGRANULOCYTOSIS [None]
  - SEPSIS [None]
